FAERS Safety Report 8532507-X (Version None)
Quarter: 2012Q3

REPORT INFORMATION
  Report Type: 
  Country: None (occurrence: None)
  Receive Date: 20120717
  Receipt Date: 20120717
  Transmission Date: 20120928
  Serious: Yes (Life-Threatening)
  Sender: FDA-Public Use
  Company Number: None

PATIENT
  Age: 52 Year
  Sex: Female
  Weight: 91.6266 kg

DRUGS (4)
  1. FENTANYL-25 [Suspect]
     Indication: HIP ARTHROPLASTY
     Dosage: 25 MCG Q5MIN PRN IV
     Route: 042
     Dates: start: 20120529, end: 20120529
  2. FENTANYL-25 [Suspect]
     Indication: PAIN
     Dosage: 25 MCG Q5MIN PRN IV
     Route: 042
     Dates: start: 20120529, end: 20120529
  3. DILAUDID [Suspect]
     Indication: PAIN
     Dosage: 0.4 MG Q10 MIN IV
     Route: 042
     Dates: start: 20120529, end: 20120529
  4. DILAUDID [Suspect]
     Indication: HIP ARTHROPLASTY
     Dosage: 0.4 MG Q10 MIN IV
     Route: 042
     Dates: start: 20120529, end: 20120529

REACTIONS (3)
  - SEDATION [None]
  - SOMNOLENCE [None]
  - RESPIRATORY RATE DECREASED [None]
